FAERS Safety Report 5036486-1 (Version None)
Quarter: 2006Q2

REPORT INFORMATION
  Report Type: 
  Country: None (occurrence: None)
  Receive Date: 20060623
  Receipt Date: 20060606
  Transmission Date: 20061013
  Serious: Yes (Other)
  Sender: FDA-Public Use
  Company Number: FR200606002116

PATIENT
  Age: 59 Year
  Sex: Female

DRUGS (5)
  1. FORTEO [Suspect]
     Indication: OSTEOPOROSIS
     Dosage: 20 UG, DAILY (1/D), SUBCUTANEOUS
     Route: 058
     Dates: start: 20060522, end: 20060529
  2. FORTEO [Concomitant]
  3. ISOPTIN [Concomitant]
  4. INSULIN, REGULAR (INSULIN) [Concomitant]
  5. INSULIN LENTE (INSULIN ZINC SUSPENSION) [Concomitant]

REACTIONS (7)
  - CONDITION AGGRAVATED [None]
  - COUGH [None]
  - DIABETES MELLITUS INADEQUATE CONTROL [None]
  - HEADACHE [None]
  - NAUSEA [None]
  - TACHYCARDIA [None]
  - VERTIGO [None]
